FAERS Safety Report 5480219-1 (Version None)
Quarter: 2007Q4

REPORT INFORMATION
  Report Type: 
  Country: None (occurrence: None)
  Receive Date: 20071003
  Receipt Date: 20070920
  Transmission Date: 20080405
  Serious: Yes (Disabling)
  Sender: FDA-Public Use
  Company Number: CHNY2007GB03213

PATIENT
  Age: 76 Year
  Sex: Male

DRUGS (4)
  1. NICOTINE [Suspect]
     Indication: SMOKING CESSATION THERAPY
     Dosage: 21 MG, TRANSDERMAL
     Route: 062
     Dates: start: 20070902, end: 20070905
  2. COMBIVENT/GFR/ (IPRATROPIUM BROMIDE, SALBUTAMOL SULFATE) [Concomitant]
  3. SERETIDE DISKUS (FLUTICASONE PROPIONATE, SALMETEROL XINAFOATE) [Concomitant]
  4. VENTOLIN [Concomitant]

REACTIONS (1)
  - DYSPNOEA [None]
